FAERS Safety Report 7676752-4 (Version None)
Quarter: 2011Q3

REPORT INFORMATION
  Report Type: 
  Country: None (occurrence: None)
  Receive Date: 20110805
  Receipt Date: 20110721
  Transmission Date: 20111222
  Serious: Yes (Hospitalization)
  Sender: FDA-Public Use
  Company Number: 2011MA009265

PATIENT
  Age: 46 Year
  Sex: Male

DRUGS (1)
  1. HYDROCORTISONE [Suspect]
     Indication: SCHNITZLER'S SYNDROME
     Dates: start: 20080601

REACTIONS (12)
  - CUSHING'S SYNDROME [None]
  - MONOCLONAL GAMMOPATHY [None]
  - ADRENAL SUPPRESSION [None]
  - PERIPHERAL SENSORY NEUROPATHY [None]
  - ACNE [None]
  - MYOPATHY [None]
  - HYPERTENSION [None]
  - ASTHENIA [None]
  - POLLAKIURIA [None]
  - EYE IRRITATION [None]
  - HAEMATOMA [None]
  - DYSSTASIA [None]
